FAERS Safety Report 8346467-8 (Version None)
Quarter: 2012Q2

REPORT INFORMATION
  Report Type: 
  Country: None (occurrence: None)
  Receive Date: 20120509
  Receipt Date: 20120503
  Transmission Date: 20120825
  Serious: Yes (Disabling, Other)
  Sender: FDA-Public Use
  Company Number: US-PFIZER INC-2012109365

PATIENT
  Sex: Male
  Weight: 102 kg

DRUGS (2)
  1. PHENOBARBITAL [Concomitant]
     Dosage: UNK
  2. DILANTIN [Suspect]
     Indication: CONVULSION
     Dosage: 30 MG, 2X/DAY
     Route: 048
     Dates: start: 19740101

REACTIONS (5)
  - LIMB DISCOMFORT [None]
  - ACCIDENT AT HOME [None]
  - OEDEMA PERIPHERAL [None]
  - LYMPH NODE PAIN [None]
  - LIMB INJURY [None]
